FAERS Safety Report 8329014-6 (Version None)
Quarter: 2012Q2

REPORT INFORMATION
  Report Type: 
  Country: None (occurrence: None)
  Receive Date: 20120502
  Receipt Date: 20120424
  Transmission Date: 20120825
  Serious: Yes (Hospitalization)
  Sender: FDA-Public Use
  Company Number: FR-B.I. PHARMACEUTICALS,INC./RIDGEFIELD-2011-FF-00958FF

PATIENT
  Sex: Female
  Weight: 55 kg

DRUGS (4)
  1. PRADAXA [Suspect]
     Indication: THROMBOSIS PROPHYLAXIS
     Dosage: 150 MG
     Route: 048
     Dates: start: 20110624, end: 20110627
  2. ASPIRIN [Concomitant]
     Indication: ATRIAL FIBRILLATION
  3. LOVENOX [Concomitant]
  4. PRADAXA [Suspect]
     Indication: HIP ARTHROPLASTY
     Dosage: 75 MG
     Route: 048
     Dates: start: 20110623, end: 20110623

REACTIONS (6)
  - ERYSIPELAS [None]
  - OEDEMA [None]
  - ANAEMIA [None]
  - GASTRIC ULCER HAEMORRHAGE [None]
  - WOUND INFECTION [None]
  - SUBCUTANEOUS HAEMATOMA [None]
